FAERS Safety Report 22016519 (Version 1)
Quarter: 2023Q1

REPORT INFORMATION
  Report Type: Report from Study
  Country: US (occurrence: US)
  Receive Date: 20230221
  Receipt Date: 20230221
  Transmission Date: 20230417
  Serious: Yes (Death)
  Sender: FDA-Public Use
  Company Number: US-BIOVITRUM-2023US02721

PATIENT
  Age: 15 Year
  Sex: Female

DRUGS (1)
  1. GAMIFANT [Suspect]
     Active Substance: EMAPALUMAB-LZSG
     Indication: Haemophagocytic lymphohistiocytosis
     Dosage: ESCALATED TO 5-7 MG / KG
     Dates: start: 2021, end: 2021

REACTIONS (2)
  - Candida infection [Fatal]
  - Off label use [Recovered/Resolved]

NARRATIVE: CASE EVENT DATE: 20210101
